FAERS Safety Report 9369064 (Version 1)
Quarter: 2013Q2

REPORT INFORMATION
  Report Type: Spontaneous
  Country: US (occurrence: US)
  Receive Date: 20130626
  Receipt Date: 20130626
  Transmission Date: 20140414
  Serious: No
  Sender: FDA-Public Use
  Company Number: US-BIOGENIDEC-2013BI055917

PATIENT
  Age: 56 Year
  Sex: Female

DRUGS (4)
  1. AVONEX [Suspect]
     Indication: RELAPSING-REMITTING MULTIPLE SCLEROSIS
     Route: 030
     Dates: start: 20130618
  2. FIORINAL [Concomitant]
     Indication: MIGRAINE
  3. CODEINE [Concomitant]
     Indication: MIGRAINE
  4. PERCOCET [Concomitant]
     Indication: MIGRAINE

REACTIONS (4)
  - Overdose [Unknown]
  - Nervousness [Unknown]
  - Emotional distress [Unknown]
  - Anxiety [Unknown]
